FAERS Safety Report 25473620 (Version 4)
Quarter: 2025Q4

REPORT INFORMATION
  Report Type: Spontaneous
  Country: US (occurrence: US)
  Receive Date: 20250624
  Receipt Date: 20251021
  Transmission Date: 20260118
  Serious: No
  Sender: BRISTOL-MYERS SQUIBB COMPANY
  Company Number: US-BRISTOL-MYERS SQUIBB COMPANY-2025-089790

PATIENT
  Age: 77 Year
  Sex: Female

DRUGS (1)
  1. CAMZYOS [Suspect]
     Active Substance: MAVACAMTEN
     Indication: Hypertrophic cardiomyopathy

REACTIONS (6)
  - Vitreous floaters [Unknown]
  - Palpitations [Unknown]
  - Intervertebral disc degeneration [Unknown]
  - Tendonitis [Unknown]
  - Tri-iodothyronine free increased [Unknown]
  - Fatigue [Unknown]
